FAERS Safety Report 16502688 (Version 1)
Quarter: 2019Q3

REPORT INFORMATION
  Report Type: Spontaneous
  Country: CN (occurrence: CN)
  Receive Date: 20190701
  Receipt Date: 20190701
  Transmission Date: 20191004
  Serious: Yes (Hospitalization, Other)
  Sender: FDA-Public Use
  Company Number: CN-ASTELLAS-2019US026809

PATIENT
  Age: 7 Year
  Sex: Male
  Weight: 22.3 kg

DRUGS (11)
  1. CYCLOPHOSPHAMIDE. [Concomitant]
     Active Substance: CYCLOPHOSPHAMIDE
     Indication: NEPHROTIC SYNDROME
     Dosage: UNK UNK, UNKNOWN FREQ.
     Route: 065
  2. TACROLIMUS. [Interacting]
     Active Substance: TACROLIMUS
     Dosage: 1 MG, TWICE DAILY (0.1 MG/KG/D)
     Route: 048
     Dates: start: 20180420, end: 201805
  3. OMEPRAZOLE. [Interacting]
     Active Substance: OMEPRAZOLE
     Indication: HELICOBACTER INFECTION
     Route: 048
     Dates: start: 201804, end: 201805
  4. CLARITHROMYCIN. [Interacting]
     Active Substance: CLARITHROMYCIN
     Indication: HELICOBACTER INFECTION
     Route: 048
     Dates: start: 201804, end: 201805
  5. PREDNISONE. [Concomitant]
     Active Substance: PREDNISONE
     Indication: NEPHROTIC SYNDROME
     Dosage: 10 MG, ONCE DAILY (ABOUT 0.5MG /KG/D)
     Route: 065
     Dates: end: 20180417
  6. RITUXIMAB. [Concomitant]
     Active Substance: RITUXIMAB
     Indication: NEPHROTIC SYNDROME
     Dosage: UNK UNK, UNKNOWN FREQ.
     Route: 065
  7. PREDNISONE. [Concomitant]
     Active Substance: PREDNISONE
     Dosage: 10 MG, ONCE DAILY (ABOUT 1 MG /KG/D)
     Route: 065
     Dates: start: 20180417
  8. TACROLIMUS. [Suspect]
     Active Substance: TACROLIMUS
     Indication: NEPHROTIC SYNDROME
     Dosage: 0.5 MG, TWICE DAILY (0.05 MG/KG/D)
     Route: 048
     Dates: end: 20180420
  9. BENAZEPRIL [Concomitant]
     Active Substance: BENAZEPRIL HYDROCHLORIDE
     Indication: NEPHROTIC SYNDROME
     Dosage: UNK UNK, UNKNOWN FREQ.
     Route: 065
  10. TACROLIMUS. [Interacting]
     Active Substance: TACROLIMUS
     Dosage: 0.5 MG, TWICE DAILY
     Route: 048
     Dates: start: 201805
  11. METHYLPREDNISOLONE. [Concomitant]
     Active Substance: METHYLPREDNISOLONE
     Indication: NEPHROTIC SYNDROME
     Dosage: UNK UNK, UNKNOWN FREQ.
     Route: 065

REACTIONS (6)
  - Immunosuppressant drug level increased [Recovered/Resolved]
  - Helicobacter infection [Recovered/Resolved]
  - Product use in unapproved indication [Unknown]
  - Hypertension [Recovered/Resolved]
  - Immunosuppressant drug level decreased [Unknown]
  - Drug interaction [Unknown]

NARRATIVE: CASE EVENT DATE: 201804
